FAERS Safety Report 4658528-5 (Version None)
Quarter: 2005Q2

REPORT INFORMATION
  Report Type: 
  Country: None (occurrence: None)
  Receive Date: 20050510
  Receipt Date: 20050510
  Transmission Date: 20051028
  Serious: Yes (Other)
  Sender: FDA-Public Use
  Company Number: None

PATIENT
  Age: 69 Year
  Sex: Male
  Weight: 88.4514 kg

DRUGS (1)
  1. FLOMAX [Suspect]
     Indication: PROSTATIC DISORDER

REACTIONS (6)
  - EYE INJURY [None]
  - IMPAIRED HEALING [None]
  - IRIDOCELE [None]
  - IRIS DISORDER [None]
  - MIOSIS [None]
  - PROCEDURAL COMPLICATION [None]
